FAERS Safety Report 12800275 (Version 1)
Quarter: 2016Q3

REPORT INFORMATION
  Report Type: Spontaneous
  Country: US (occurrence: US)
  Receive Date: 20160930
  Receipt Date: 20160930
  Transmission Date: 20161109
  Serious: No
  Sender: FDA-Public Use
  Company Number: US-PFIZER INC-2016453184

PATIENT
  Sex: Male
  Weight: 91 kg

DRUGS (2)
  1. PAROXETINE. [Concomitant]
     Active Substance: PAROXETINE
     Indication: MOOD SWINGS
     Dosage: 20 MG, 1X/DAY
     Dates: start: 1986
  2. PHENYTOIN. [Suspect]
     Active Substance: PHENYTOIN
     Indication: SEIZURE
     Dosage: 500 MG, DAILY, (TWO 100MG CAPSULES IN MORNING AND THREE 100MG CAPSULES AT BED TIME)
     Route: 048

REACTIONS (3)
  - Asthenia [Unknown]
  - Drug ineffective [Unknown]
  - Hypersomnia [Unknown]
